FAERS Safety Report 6817986-8 (Version None)
Quarter: 2010Q3

REPORT INFORMATION
  Report Type: 
  Country: None (occurrence: None)
  Receive Date: 20100706
  Receipt Date: 20100623
  Transmission Date: 20110219
  Serious: Yes (Hospitalization)
  Sender: FDA-Public Use
  Company Number: GXKR2010US07030

PATIENT
  Age: 3 Year
  Sex: Female

DRUGS (3)
  1. PREDNISOLONE [Suspect]
     Dosage: 2 MG/KG/DAY
     Route: 048
  2. PREDNISOLONE [Suspect]
     Dosage: 1 MG/KG/DAY
     Route: 048
  3. PREDNISOLONE [Suspect]
     Dosage: 0.5 MG/KG/DAY

REACTIONS (5)
  - HYPOXIA [None]
  - PAIN IN EXTREMITY [None]
  - PYREXIA [None]
  - SICKLE CELL ANAEMIA [None]
  - STEROID WITHDRAWAL SYNDROME [None]
